FAERS Safety Report 19149729 (Version 2)
Quarter: 2021Q3

REPORT INFORMATION
  Report Type: Spontaneous
  Country: CA (occurrence: CA)
  Receive Date: 20210417
  Receipt Date: 20210723
  Transmission Date: 20211014
  Serious: Yes (Life-Threatening, Other)
  Sender: FDA-Public Use
  Company Number: CA-TAKEDA-2021TUS023916

PATIENT
  Age: 9 Year
  Sex: Female

DRUGS (15)
  1. AZATHIOPRINE. [Suspect]
     Active Substance: AZATHIOPRINE
     Indication: GRANULOMATOSIS WITH POLYANGIITIS
     Route: 065
  2. LEFLUNOMIDE. [Suspect]
     Active Substance: LEFLUNOMIDE
     Indication: GRANULOMATOSIS WITH POLYANGIITIS
     Dosage: 20 MILLIGRAM, QD
     Route: 065
     Dates: end: 201806
  3. METHOTREXATE. [Suspect]
     Active Substance: METHOTREXATE
     Indication: GRANULOMATOSIS WITH POLYANGIITIS
     Dosage: 25 MILLIGRAM, 1/WEEK
     Route: 048
  4. RITUXIMAB. [Suspect]
     Active Substance: RITUXIMAB
     Dosage: 1 GRAM
     Route: 065
  5. PREDNISONE. [Suspect]
     Active Substance: PREDNISONE
     Dosage: UNK MILLIGRAM, QD
     Route: 065
     Dates: start: 201805, end: 201911
  6. PREDNISONE. [Suspect]
     Active Substance: PREDNISONE
     Indication: GRANULOMATOSIS WITH POLYANGIITIS
     Dosage: 5 MILLIGRAM, QD
     Route: 065
  7. RITUXIMAB. [Suspect]
     Active Substance: RITUXIMAB
     Indication: GRANULOMATOSIS WITH POLYANGIITIS
     Dosage: 375 MILLIGRAM/SQ. METER
     Route: 065
  8. CYCLOPHOSPHAMIDE. [Suspect]
     Active Substance: CYCLOPHOSPHAMIDE
     Indication: GRANULOMATOSIS WITH POLYANGIITIS
     Dosage: UNK 7 PULSES
     Route: 042
     Dates: start: 2007
  9. METHOTREXATE. [Suspect]
     Active Substance: METHOTREXATE
     Dosage: UNK MILLIGRAM, 1/WEEK
     Route: 065
     Dates: end: 201907
  10. ECULIZUMAB [Suspect]
     Active Substance: ECULIZUMAB
     Indication: GRANULOMATOSIS WITH POLYANGIITIS
     Dosage: UNK,SINGLE DOSE
     Route: 065
     Dates: start: 2013
  11. MYCOPHENOLATE MOFETIL. [Suspect]
     Active Substance: MYCOPHENOLATE MOFETIL
     Indication: GRANULOMATOSIS WITH POLYANGIITIS
     Dosage: UNK
     Route: 065
     Dates: start: 2008
  12. METHOTREXATE. [Suspect]
     Active Substance: METHOTREXATE
     Dosage: UNK
     Route: 065
     Dates: start: 2008
  13. RITUXIMAB. [Suspect]
     Active Substance: RITUXIMAB
     Dosage: 500 MILLIGRAM,EVERY 6 MONTHS
     Route: 065
  14. HUMAN NORMAL IMMUNOGLOBULIN [Suspect]
     Active Substance: HUMAN IMMUNOGLOBULIN G
     Indication: GRANULOMATOSIS WITH POLYANGIITIS
     Dosage: UNK
     Route: 042
     Dates: start: 2013
  15. PREDNISONE. [Suspect]
     Active Substance: PREDNISONE
     Dosage: 15 MILLIGRAM
     Route: 065

REACTIONS (11)
  - Hypersensitivity [Unknown]
  - Osteonecrosis [Unknown]
  - Condition aggravated [Unknown]
  - Pneumocystis jirovecii pneumonia [Unknown]
  - Cytopenia [Unknown]
  - Drug ineffective [Unknown]
  - Cytomegalovirus infection [Unknown]
  - Osteomyelitis [Unknown]
  - Pneumonia bacterial [Unknown]
  - Arthritis bacterial [Unknown]
  - Osteoporosis [Unknown]
